FAERS Safety Report 5765477-8 (Version None)
Quarter: 2008Q2

REPORT INFORMATION
  Report Type: 
  Country: None (occurrence: None)
  Receive Date: 20080611
  Receipt Date: 20080605
  Transmission Date: 20081010
  Serious: Yes (Other)
  Sender: FDA-Public Use
  Company Number: B0517418A

PATIENT
  Age: 74 Year
  Sex: Female

DRUGS (5)
  1. VALTREX [Suspect]
     Indication: HERPES ZOSTER
     Dosage: 1000MG THREE TIMES PER DAY
     Route: 048
     Dates: start: 20080414, end: 20080416
  2. CALTAN [Concomitant]
     Dosage: 4.5G PER DAY
     Route: 048
     Dates: start: 20080109
  3. RENAGEL [Concomitant]
     Dosage: 2.25G PER DAY
     Route: 048
     Dates: start: 20080109
  4. DEPAS [Concomitant]
     Indication: INSOMNIA
     Dosage: 1MG PER DAY
     Route: 048
     Dates: start: 20080109
  5. ALOSENN [Concomitant]
     Indication: CONSTIPATION
     Dosage: 1G PER DAY
     Route: 048
     Dates: start: 20080109

REACTIONS (6)
  - COMMUNICATION DISORDER [None]
  - CONFUSIONAL STATE [None]
  - DYSARTHRIA [None]
  - FEELING ABNORMAL [None]
  - NERVOUS SYSTEM DISORDER [None]
  - PARAMNESIA [None]
